FAERS Safety Report 15133985 (Version 3)
Quarter: 2018Q4

REPORT INFORMATION
  Report Type: Spontaneous
  Country: US (occurrence: US)
  Receive Date: 20180712
  Receipt Date: 20181203
  Transmission Date: 20190204
  Serious: Yes (Other)
  Sender: FDA-Public Use
  Company Number: US-SA-2018SA179862

PATIENT
  Sex: Female

DRUGS (5)
  1. AUBAGIO [Suspect]
     Active Substance: TERIFLUNOMIDE
     Indication: MULTIPLE SCLEROSIS
     Dosage: 1 DF, QD
     Route: 048
     Dates: start: 2015
  2. COLLAGEN [Concomitant]
     Active Substance: COLLAGEN
  3. VITAMIN D [Concomitant]
     Active Substance: CHOLECALCIFEROL
  4. CALCIUM [Concomitant]
     Active Substance: CALCIUM
  5. MAGNESIUM [Concomitant]
     Active Substance: MAGNESIUM

REACTIONS (2)
  - Hypoaesthesia [Unknown]
  - Hemiparesis [Unknown]
